FAERS Safety Report 5371531-5 (Version None)
Quarter: 2007Q2

REPORT INFORMATION
  Report Type: 
  Country: None (occurrence: None)
  Receive Date: 20070625
  Receipt Date: 20070611
  Transmission Date: 20071010
  Serious: Yes (Other)
  Sender: FDA-Public Use
  Company Number: IMP_02912_2007

PATIENT
  Sex: Male
  Weight: 245 kg

DRUGS (4)
  1. BUDEPRION                 300 MG [Suspect]
     Indication: BACK PAIN
     Dosage: (300 MG)
     Dates: start: 20070314, end: 20070517
  2. BUDEPRION                 300 MG [Suspect]
     Indication: DEPRESSION
     Dosage: (300 MG)
     Dates: start: 20070314, end: 20070517
  3. CYMBALTA [Suspect]
     Indication: DEPRESSION
  4. CYMBALTA [Suspect]
     Indication: NECK PAIN

REACTIONS (12)
  - CHEST PAIN [None]
  - CONDITION AGGRAVATED [None]
  - DEPRESSION [None]
  - DRUG INEFFECTIVE [None]
  - HYPERHIDROSIS [None]
  - NAUSEA [None]
  - NECK PAIN [None]
  - NIGHTMARE [None]
  - PALPITATIONS [None]
  - PHARMACEUTICAL PRODUCT COMPLAINT [None]
  - SUICIDAL IDEATION [None]
  - SURGICAL FAILURE [None]
